FAERS Safety Report 22148496 (Version 1)
Quarter: 2023Q1

REPORT INFORMATION
  Report Type: Spontaneous
  Country: US (occurrence: US)
  Receive Date: 20230328
  Receipt Date: 20230328
  Transmission Date: 20230417
  Serious: No
  Sender: FDA-Public Use
  Company Number: US-SA-SAC20230327000202

PATIENT
  Age: 54 Year
  Sex: Female

DRUGS (2)
  1. AUBAGIO [Suspect]
     Active Substance: TERIFLUNOMIDE
     Indication: Multiple sclerosis
     Dosage: UNK
     Route: 065
     Dates: start: 201705, end: 201806
  2. OCRELIZUMAB [Concomitant]
     Active Substance: OCRELIZUMAB
     Dosage: UNK
     Dates: start: 201806

REACTIONS (1)
  - Lymphopenia [Unknown]
